FAERS Safety Report 5634047-4 (Version None)
Quarter: 2008Q1

REPORT INFORMATION
  Report Type: 
  Country: None (occurrence: None)
  Receive Date: 20080131
  Receipt Date: 20071120
  Transmission Date: 20080703
  Serious: No
  Sender: FDA-Public Use
  Company Number: PHEH2007US15054

PATIENT

DRUGS (2)
  1. TEKTURNA [Suspect]
  2. BETA BLOCKING AGENTS (NO INGREDIENTS/SUBSTANCES) [Concomitant]

REACTIONS (2)
  - HEPATIC ENZYME ABNORMAL [None]
  - LIPIDS ABNORMAL [None]
